FAERS Safety Report 8232639-X (Version None)
Quarter: 2012Q1

REPORT INFORMATION
  Report Type: 
  Country: None (occurrence: None)
  Receive Date: 20120323
  Receipt Date: 20111207
  Transmission Date: 20120608
  Serious: Yes (Other)
  Sender: FDA-Public Use
  Company Number: US-VERTEX PHARMACEUTICALS INC.-AE-2011-004581

PATIENT
  Sex: Male

DRUGS (3)
  1. PEGASYS [Concomitant]
     Indication: HEPATITIS C
  2. INCIVEK [Suspect]
     Indication: HEPATITIS C
  3. RIBAVIRIN [Concomitant]
     Indication: HEPATITIS C

REACTIONS (3)
  - NEUTROPENIA [None]
  - ANAEMIA [None]
  - PYREXIA [None]
